FAERS Safety Report 5483263-3 (Version None)
Quarter: 2007Q4

REPORT INFORMATION
  Report Type: 
  Country: None (occurrence: None)
  Receive Date: 20071012
  Receipt Date: 20071001
  Transmission Date: 20080405
  Serious: Yes (Life-Threatening, Hospitalization, Other)
  Sender: FDA-Public Use
  Company Number: AU-NOVOPROD-236166

PATIENT

DRUGS (5)
  1. NOVOSEVEN [Suspect]
     Indication: POST PROCEDURAL HAEMORRHAGE
     Dosage: 9.6 MG, SINGLE
     Route: 042
     Dates: start: 20040326
  2. PLATELETS [Concomitant]
     Dosage: 8 IU, UNK
  3. KRIOPRECIPITAT [Concomitant]
  4. FRESH FROZEN PLASMA [Concomitant]
  5. TIMENTIN [Concomitant]
     Dosage: TWO DOSES OF 3.1 GRAM
     Route: 042
     Dates: start: 20040325

REACTIONS (1)
  - HYPERSENSITIVITY [None]
